FAERS Safety Report 8925567 (Version 1)
Quarter: 2012Q4

REPORT INFORMATION
  Report Type: 
  Country: US (occurrence: US)
  Receive Date: 20121126
  Receipt Date: 20121126
  Transmission Date: 20130627
  Serious: Yes (Hospitalization)
  Sender: FDA-Public Use
  Company Number: US-BAYER-2012-120663

PATIENT
  Age: 46 Year
  Sex: Female

DRUGS (3)
  1. YASMIN [Suspect]
  2. NEXIUM [Concomitant]
     Dosage: UNK
     Dates: start: 20030110
  3. ANTIBIOTICS [Concomitant]
     Route: 042

REACTIONS (1)
  - Mesenteric vein thrombosis [None]
